FAERS Safety Report 8439563 (Version 5)
Quarter: 2013Q1

REPORT INFORMATION
  Report Type: Report from Study
  Country: US (occurrence: US)
  Receive Date: 20120305
  Receipt Date: 20130325
  Transmission Date: 20140127
  Serious: Yes (Hospitalization)
  Sender: FDA-Public Use
  Company Number: US-BIOGENIDEC-2011BI026329

PATIENT
  Age: 26 Year
  Sex: Female

DRUGS (9)
  1. TYSABRI [Suspect]
     Indication: MULTIPLE SCLEROSIS
     Route: 042
     Dates: start: 20070508, end: 20110603
  2. TYSABRI [Suspect]
     Indication: MULTIPLE SCLEROSIS
     Route: 042
     Dates: start: 20120316
  3. EFFEXOR [Concomitant]
     Dates: end: 201106
  4. COUMADIN [Concomitant]
     Dates: end: 201106
  5. BIRTH CONTROL PILL [Concomitant]
     Dates: end: 201106
  6. PRENATAL PLUS [Concomitant]
     Dates: start: 201106
  7. ZOFRAN [Concomitant]
     Dates: start: 201106
  8. ZANTAC [Concomitant]
     Dates: start: 201108
  9. AMPICILLIN [Concomitant]
     Dates: start: 201110

REACTIONS (2)
  - Breech presentation [Recovered/Resolved]
  - Pregnancy [Recovered/Resolved]
